FAERS Safety Report 4988515-9 (Version None)
Quarter: 2006Q2

REPORT INFORMATION
  Report Type: 
  Country: None (occurrence: None)
  Receive Date: 20060502
  Receipt Date: 20060420
  Transmission Date: 20061013
  Serious: Yes (Hospitalization)
  Sender: FDA-Public Use
  Company Number: US-AMGEN-US177396

PATIENT
  Sex: Female

DRUGS (10)
  1. PROCRIT [Suspect]
     Indication: ANAEMIA
  2. IRON [Concomitant]
  3. LIPITOR [Concomitant]
  4. LISINOPRIL [Concomitant]
  5. HYDROCHLOROTHIAZIDE [Concomitant]
  6. FOLIC ACID [Concomitant]
  7. ASCORBIC ACID [Concomitant]
  8. ACTOS [Concomitant]
  9. METFORMIN [Concomitant]
  10. ASPIRIN [Concomitant]

REACTIONS (2)
  - HOSPITALISATION [None]
  - INJECTION SITE IRRITATION [None]
